FAERS Safety Report 21748127 (Version 2)
Quarter: 2022Q4

REPORT INFORMATION
  Report Type: Spontaneous
  Country: IN (occurrence: IN)
  Receive Date: 20221219
  Receipt Date: 20221230
  Transmission Date: 20230113
  Serious: Yes (Other)
  Sender: FDA-Public Use
  Company Number: IN-PFIZER INC-PV202200125675

PATIENT
  Age: 75 Year
  Sex: Female

DRUGS (5)
  1. PALBOCICLIB [Suspect]
     Active Substance: PALBOCICLIB
     Indication: Breast cancer
     Dosage: UNK
     Route: 048
     Dates: start: 20221003
  2. FEMARA [Concomitant]
     Active Substance: LETROZOLE
     Indication: Breast cancer
     Dosage: UNK
     Dates: start: 20220826
  3. SHELCAL CT [Concomitant]
     Dosage: (500MG) 0-1-0 X 2MONTHS
  4. CHOLECALCIFEROL [Concomitant]
     Active Substance: CHOLECALCIFEROL
     Dosage: D (60000U) HD EVERY 15 DAYS X 2MONTHS
  5. BECOSULES [ASCORBIC ACID;DEXPANTHENOL;NICOTINAMIDE;PYRIDOXINE HYDROCHL [Concomitant]
     Dosage: 0-1-0 X 2MONTHS

REACTIONS (3)
  - Blood pressure increased [Unknown]
  - Haemoglobin decreased [Unknown]
  - Heart rate increased [Unknown]

NARRATIVE: CASE EVENT DATE: 20221208
